FAERS Safety Report 18237068 (Version 1)
Quarter: 2020Q3

REPORT INFORMATION
  Report Type: Spontaneous
  Country: US (occurrence: US)
  Receive Date: 20200907
  Receipt Date: 20200907
  Transmission Date: 20201103
  Serious: No
  Sender: FDA-Public Use
  Company Number: US-JNJFOC-20200840397

PATIENT
  Sex: Female

DRUGS (1)
  1. WOMENS ROGAINE UNSCENTED [Suspect]
     Active Substance: MINOXIDIL
     Indication: ALOPECIA
     Dosage: FULL CAPFULL (1/2 CAPFUL ON TOP AND 1/2 CAPFUL ON SIDES)?PRODUCT LAST ADMINISTERED ON 24?AUG?2020
     Route: 061
     Dates: start: 20200505

REACTIONS (2)
  - Overdose [Unknown]
  - Hair growth abnormal [Unknown]

NARRATIVE: CASE EVENT DATE: 2020
